FAERS Safety Report 5480604-8 (Version None)
Quarter: 2007Q4

REPORT INFORMATION
  Report Type: 
  Country: None (occurrence: None)
  Receive Date: 20071009
  Receipt Date: 20071004
  Transmission Date: 20080405
  Serious: Yes (Hospitalization)
  Sender: FDA-Public Use
  Company Number: BE-ASTRAZENECA-2007AC01730

PATIENT
  Sex: Male

DRUGS (2)
  1. CASODEX [Suspect]
     Indication: PROSTATE CANCER
     Route: 048
     Dates: start: 20070822, end: 20070913
  2. ZOLADEX [Concomitant]
     Indication: PROSTATE CANCER
     Route: 058

REACTIONS (1)
  - VASCULITIS [None]
